FAERS Safety Report 9819590 (Version 1)
Quarter: 2014Q1

REPORT INFORMATION
  Report Type: Spontaneous
  Country: US (occurrence: None)
  Receive Date: 20140113
  Receipt Date: 20140113
  Transmission Date: 20141002
  Serious: Yes (Other)
  Sender: FDA-Public Use
  Company Number: US-013984

PATIENT
  Age: 43 Year
  Sex: Female
  Weight: 55.79 kg

DRUGS (3)
  1. MENOPUR [Suspect]
     Indication: INFERTILITY
     Dosage: (150 IU, 150), 150 IU, 150)
     Dates: start: 20110426, end: 20110426
  2. BRAVELLE [Suspect]
     Indication: INFERTILITY
     Dosage: (300 IU, 300), (300 IU, 300)
     Dates: start: 20110426, end: 20110426
  3. OVIDREL [Concomitant]

REACTIONS (2)
  - Benign hydatidiform mole [None]
  - Drug ineffective [None]
